FAERS Safety Report 5449360-3 (Version None)
Quarter: 2007Q3

REPORT INFORMATION
  Report Type: 
  Country: None (occurrence: None)
  Receive Date: 20070911
  Receipt Date: 20070830
  Transmission Date: 20080115
  Serious: Yes (Other)
  Sender: FDA-Public Use
  Company Number: US-PFIZER INC-2007072360

PATIENT
  Sex: Male
  Weight: 75 kg

DRUGS (7)
  1. GEODON [Suspect]
     Indication: SCHIZOAFFECTIVE DISORDER
     Route: 048
  2. GEODON [Suspect]
     Indication: BIPOLAR DISORDER
  3. GEODON [Suspect]
     Indication: PSYCHOTIC DISORDER
  4. CLONAZEPAM [Concomitant]
  5. COGENTIN [Concomitant]
  6. KLONOPIN [Concomitant]
  7. PIROXICAM [Concomitant]

REACTIONS (8)
  - ANGINA PECTORIS [None]
  - ANGLE CLOSURE GLAUCOMA [None]
  - BLOOD PRESSURE INCREASED [None]
  - DEPENDENCE [None]
  - DRUG INEFFECTIVE [None]
  - HEART RATE INCREASED [None]
  - HEPATIC ENZYME INCREASED [None]
  - INTRAOCULAR PRESSURE INCREASED [None]
